FAERS Safety Report 25650223 (Version 1)
Quarter: 2025Q3

REPORT INFORMATION
  Report Type: Spontaneous
  Country: US (occurrence: US)
  Receive Date: 20250806
  Receipt Date: 20250806
  Transmission Date: 20251021
  Serious: No
  Sender: GILEAD
  Company Number: US-GILEAD-2025-0723501

PATIENT
  Age: 63 Year
  Sex: Female

DRUGS (1)
  1. LIVDELZI [Suspect]
     Active Substance: SELADELPAR LYSINE
     Indication: Primary biliary cholangitis
     Dosage: 10 MG, QD
     Route: 065
     Dates: start: 20250404

REACTIONS (3)
  - Ophthalmic migraine [Recovering/Resolving]
  - CSF volume increased [Unknown]
  - Multiple allergies [Unknown]

NARRATIVE: CASE EVENT DATE: 20250805
